FAERS Safety Report 7088044-5 (Version None)
Quarter: 2010Q4

REPORT INFORMATION
  Report Type: 
  Country: None (occurrence: None)
  Receive Date: 20101108
  Receipt Date: 20101026
  Transmission Date: 20110411
  Serious: Yes (Other)
  Sender: FDA-Public Use
  Company Number: PHHY2010DE71823

PATIENT
  Sex: Male
  Weight: 68 kg

DRUGS (3)
  1. ZOMETA [Suspect]
     Indication: BONE DISORDER
     Dosage: 4 MG EVERY 4 WEEK
     Route: 042
     Dates: start: 20040903, end: 20041028
  2. DURAGESIC-100 [Concomitant]
  3. SEVREDOL [Concomitant]

REACTIONS (1)
  - OSTEONECROSIS OF JAW [None]
